FAERS Safety Report 7340210-7 (Version None)
Quarter: 2011Q1

REPORT INFORMATION
  Report Type: 
  Country: None (occurrence: None)
  Receive Date: 20110309
  Receipt Date: 20110228
  Transmission Date: 20110831
  Serious: Yes (Other)
  Sender: FDA-Public Use
  Company Number: FR-BRISTOL-MYERS SQUIBB COMPANY-15591753

PATIENT
  Age: 71 Year
  Sex: Male

DRUGS (1)
  1. ERBITUX [Suspect]
     Indication: HEAD AND NECK CANCER
     Dosage: APR-10 -AUG-2010,RECEIVED CETUXIMAB,FLUOROURACIL, PLATINE SALT. MONOTHERAPY OCT-10 LAST INF 15FEB11
     Route: 042
     Dates: start: 20101001

REACTIONS (1)
  - CYTOLYTIC HEPATITIS [None]
